FAERS Safety Report 4901032-7 (Version None)
Quarter: 2006Q1

REPORT INFORMATION
  Report Type: 
  Country: None (occurrence: None)
  Receive Date: 20060201
  Receipt Date: 20060124
  Transmission Date: 20060701
  Serious: Yes (Hospitalization, Other)
  Sender: FDA-Public Use
  Company Number: DE200601004124

PATIENT
  Age: 73 Year
  Sex: Male

DRUGS (7)
  1. GEMZAR [Suspect]
     Indication: PANCREATIC CARCINOMA
     Dosage: 800 MG/M2, INTRAVENOUS
     Route: 042
     Dates: start: 20060105
  2. ASPIRIN [Concomitant]
  3. MADOPAR(BENSERAZIDE HYDROCHLORIDE, LEVODOPA) [Concomitant]
  4. PK-MERZ /GFR/(AMANTADINE SULFATE) [Concomitant]
  5. BISOPROLOL FUMARATE [Concomitant]
  6. ESIDRIX [Concomitant]
  7. NACOM (CARBIDOPA, LEVODOPA) [Concomitant]

REACTIONS (8)
  - ASTHENIA [None]
  - BLOOD PRESSURE INCREASED [None]
  - DIZZINESS [None]
  - DRUG INTOLERANCE [None]
  - FALL [None]
  - HEADACHE [None]
  - NAUSEA [None]
  - VOMITING [None]
